FAERS Safety Report 18281520 (Version 1)
Quarter: 2020Q3

REPORT INFORMATION
  Report Type: Report from Study
  Country: CY (occurrence: CY)
  Receive Date: 20200918
  Receipt Date: 20200918
  Transmission Date: 20201103
  Serious: Yes (Other)
  Sender: FDA-Public Use
  Company Number: NVSC2020CY252592

PATIENT
  Sex: Male
  Weight: 80 kg

DRUGS (1)
  1. INC280 [Suspect]
     Active Substance: CAPMATINIB
     Indication: MALIGNANT NEOPLASM OF RENAL PELVIS
     Dosage: 400 MG, BID
     Route: 048
     Dates: start: 20200403, end: 20200528

REACTIONS (1)
  - Fatigue [Recovered/Resolved]
